FAERS Safety Report 9947072 (Version 1)
Quarter: 2014Q1

REPORT INFORMATION
  Report Type: Report from Study
  Country: US (occurrence: US)
  Receive Date: 20140303
  Receipt Date: 20140303
  Transmission Date: 20141002
  Serious: No
  Sender: FDA-Public Use
  Company Number: US-ABBVIE-13P-163-1061852-00

PATIENT
  Sex: Female

DRUGS (4)
  1. HUMIRA [Suspect]
     Indication: CROHN^S DISEASE
     Dates: start: 2008, end: 2008
  2. HUMIRA [Suspect]
     Dates: start: 2008, end: 2008
  3. HUMIRA [Suspect]
     Dates: start: 2008
  4. HUMIRA [Suspect]
     Dates: start: 2011

REACTIONS (7)
  - Lymphadenopathy [Recovered/Resolved]
  - Nasopharyngitis [Recovered/Resolved]
  - Dermatitis [Not Recovered/Not Resolved]
  - Food allergy [Not Recovered/Not Resolved]
  - Allergy to metals [Not Recovered/Not Resolved]
  - Hypersensitivity [Not Recovered/Not Resolved]
  - Drug ineffective [Recovered/Resolved]
